FAERS Safety Report 5707130-2 (Version None)
Quarter: 2008Q2

REPORT INFORMATION
  Report Type: 
  Country: None (occurrence: None)
  Receive Date: 20080414
  Receipt Date: 20080414
  Transmission Date: 20081010
  Serious: Yes (Life-Threatening, Disabling)
  Sender: FDA-Public Use
  Company Number: None

PATIENT
  Age: 20 Year
  Sex: Female
  Weight: 54.4316 kg

DRUGS (1)
  1. METHADONE HCL [Suspect]
     Indication: DRUG DEPENDENCE
     Dosage: 120+ MG DAILY PO
     Route: 048
     Dates: start: 20060101, end: 20080413

REACTIONS (2)
  - ABNORMAL BEHAVIOUR [None]
  - DEPENDENCE [None]
